FAERS Safety Report 16547992 (Version 1)
Quarter: 2019Q3

REPORT INFORMATION
  Report Type: Spontaneous
  Country: AT (occurrence: AT)
  Receive Date: 20190709
  Receipt Date: 20190709
  Transmission Date: 20191004
  Serious: Yes (Other)
  Sender: FDA-Public Use
  Company Number: AT-TEVA-2019-AT-1073316

PATIENT
  Age: 53 Year
  Sex: Male

DRUGS (17)
  1. QUILONORM RETARD [Suspect]
     Active Substance: LITHIUM CARBONATE
     Dosage: 450MG
     Dates: start: 20190104, end: 20190109
  2. QUILONORM RETARD [Suspect]
     Active Substance: LITHIUM CARBONATE
     Dosage: 450MG
     Dates: start: 20190311, end: 20190414
  3. DEPAKINE CR [Concomitant]
     Active Substance: VALPROATE SODIUM
     Dosage: 500MG
     Dates: start: 20190109, end: 20190110
  4. QUETIAPINE FUMARATE. [Concomitant]
     Active Substance: QUETIAPINE FUMARATE
     Dates: start: 20181231, end: 20190225
  5. NEURONTIN [Concomitant]
     Active Substance: GABAPENTIN
     Dosage: 600MG
     Dates: start: 20190219
  6. DEPAKINE CR [Concomitant]
     Active Substance: VALPROATE SODIUM
     Dosage: 1500MG
     Dates: start: 20181229, end: 20190107
  7. PRAXITEN [Concomitant]
     Active Substance: OXAZEPAM
     Dosage: 25O-O MG, DOSE TAPERING
     Dates: start: 20181228, end: 20190220
  8. QUETIAPINE FUMARATE. [Concomitant]
     Active Substance: QUETIAPINE FUMARATE
     Dosage: 300MG
     Dates: start: 20190328
  9. TRESLEEN [Concomitant]
     Active Substance: SERTRALINE HYDROCHLORIDE
     Dosage: 100 MG
     Dates: start: 20190102
  10. WELLBUTRIN XL [Concomitant]
     Active Substance: BUPROPION HYDROCHLORIDE
     Dosage: 150MG
     Dates: start: 20190321
  11. LISINOPRIL. [Suspect]
     Active Substance: LISINOPRIL
     Dosage: 20MG, SINCE MONTHS
     Dates: start: 2019
  12. QUILONORM RETARD [Suspect]
     Active Substance: LITHIUM CARBONATE
     Dosage: 675MG
     Dates: start: 20190110, end: 20190214
  13. QUILONORM RETARD [Suspect]
     Active Substance: LITHIUM CARBONATE
     Dosage: 450MG
     Dates: start: 20190215, end: 20190303
  14. QUILONORM RETARD [Suspect]
     Active Substance: LITHIUM CARBONATE
     Dosage: 675MG
     Dates: start: 20190304, end: 20190310
  15. DEPAKINE CR [Concomitant]
     Active Substance: VALPROATE SODIUM
     Dosage: 1000MG
     Dates: start: 20181228, end: 20181228
  16. QUETIAPINE FUMARATE. [Concomitant]
     Active Substance: QUETIAPINE FUMARATE
     Dosage: 200MG
     Dates: start: 20190226, end: 20190327
  17. NEURONTIN [Concomitant]
     Active Substance: GABAPENTIN
     Dosage: 300MG
     Dates: start: 20190218, end: 20190220

REACTIONS (1)
  - Acute kidney injury [Recovered/Resolved]

NARRATIVE: CASE EVENT DATE: 20190415
